FAERS Safety Report 16023799 (Version 1)
Quarter: 2019Q1

REPORT INFORMATION
  Report Type: Spontaneous
  Country: FR (occurrence: FR)
  Receive Date: 20190301
  Receipt Date: 20190301
  Transmission Date: 20190418
  Serious: Yes (Other)
  Sender: FDA-Public Use
  Company Number: FR-PFIZER INC-2019086178

PATIENT
  Age: 48 Year
  Sex: Female

DRUGS (4)
  1. DOXORUBICIN HCL [Suspect]
     Active Substance: DOXORUBICIN HYDROCHLORIDE
     Indication: HODGKIN^S DISEASE
     Dosage: 45 MG, UNK
     Route: 042
     Dates: start: 20181202, end: 20181231
  2. DACARBAZINE. [Suspect]
     Active Substance: DACARBAZINE
     Indication: HODGKIN^S DISEASE
     Dosage: 675 MG, UNK
     Route: 042
     Dates: start: 20181202, end: 20181231
  3. BLEOMYCINE BELLON [Suspect]
     Active Substance: BLEOMYCIN SULFATE
     Indication: HODGKIN^S DISEASE
     Dosage: UNK
     Route: 042
     Dates: start: 20181202, end: 20181231
  4. VELBE [Suspect]
     Active Substance: VINBLASTINE SULFATE
     Indication: HODGKIN^S DISEASE
     Dosage: 11 MG, UNK
     Route: 042
     Dates: start: 20181202, end: 20181231

REACTIONS (2)
  - Dermatitis bullous [Unknown]
  - Dry skin [Unknown]

NARRATIVE: CASE EVENT DATE: 20181231
